FAERS Safety Report 11381823 (Version 5)
Quarter: 2015Q4

REPORT INFORMATION
  Report Type: Report from Study
  Country: CA (occurrence: CA)
  Receive Date: 20150814
  Receipt Date: 20151001
  Transmission Date: 20160304
  Serious: Yes (Other)
  Sender: FDA-Public Use
  Company Number: CA-UCBSA-2014022145

PATIENT
  Age: 33 Year
  Sex: Female
  Weight: 81.9 kg

DRUGS (23)
  1. CERTOLIZUMAB PEGOL RA [Suspect]
     Active Substance: CERTOLIZUMAB PEGOL
     Indication: RHEUMATOID ARTHRITIS
     Dosage: 400 MG, EV 2 WEEKS(QOW)
     Route: 058
     Dates: start: 20140729, end: 20140826
  2. PRENATAL VITAMINS [Concomitant]
     Active Substance: VITAMINS
     Indication: PREGNANCY
     Dosage: 1 DF, ONCE DAILY (QD)
     Route: 048
  3. VITAMIN C [Concomitant]
     Active Substance: ASCORBIC ACID
     Indication: PROPHYLAXIS
     Dosage: UNKNOWN DOSE, ONCE DAILY (QD)
     Route: 048
  4. AMOXICILLIN. [Concomitant]
     Active Substance: AMOXICILLIN
     Indication: BRONCHITIS
     Dosage: 250 MG, 3X/DAY (TID)
     Dates: start: 20150112, end: 20150127
  5. VITAMIN B12 [Concomitant]
     Active Substance: CYANOCOBALAMIN
     Indication: PREGNANCY
     Dosage: 1 DF, 2X/WEEK
     Route: 048
  6. ZINC [Concomitant]
     Active Substance: ZINC\ZINC CHLORIDE
     Indication: PREGNANCY
     Dosage: 1 DF, 2X/WEEK
     Route: 048
  7. CHROMIUM [Concomitant]
     Active Substance: CHROMIC CHLORIDE\CHROMIUM
     Indication: PREGNANCY
     Dosage: 1 DF, 2X/WEEK
     Route: 048
  8. VENTOLIN [Concomitant]
     Active Substance: ALBUTEROL SULFATE
     Indication: ASTHMA
     Dosage: UNK, 2X/DAY (BID) (INHALED)
     Route: 045
  9. MULTIVITAMIN [Concomitant]
     Active Substance: VITAMINS
     Indication: PREGNANCY
     Dosage: 1 DF, ONCE DAILY (QD)
     Route: 048
  10. ALVESCO [Concomitant]
     Active Substance: CICLESONIDE
     Indication: ASTHMA
     Dosage: UNK, 2X/DAY (BID)(INHALED)
     Route: 045
  11. KEFLEX [Concomitant]
     Active Substance: CEPHALEXIN
     Indication: INCISION SITE INFECTION
     Dosage: 250 MG, UNK
     Dates: start: 20150812
  12. TRANDOLAPRIL. [Concomitant]
     Active Substance: TRANDOLAPRIL
     Indication: HYPERTENSION
     Dosage: 1 MG, UNK
     Dates: start: 20150812, end: 20150817
  13. OXYTOCIN. [Concomitant]
     Active Substance: OXYTOCIN
     Indication: LABOUR INDUCTION
     Dosage: 20 MLS, HOURLY
     Route: 042
     Dates: start: 20150802, end: 20150802
  14. NOVORAPID [Concomitant]
     Active Substance: INSULIN ASPART
     Indication: TYPE 1 DIABETES MELLITUS
     Dosage: CONTINUOUSLY (INSULIN PUMP)
  15. FOLIC ACID. [Concomitant]
     Active Substance: FOLIC ACID
     Indication: PREGNANCY
     Dosage: 5 MG, ONCE DAILY (QD)
     Route: 048
  16. CERVIDIL [Concomitant]
     Active Substance: DINOPROSTONE
     Indication: LABOUR INDUCTION
     Dosage: UNK
     Dates: start: 20150801, end: 20150802
  17. CERTOLIZUMAB PEGOL RA [Suspect]
     Active Substance: CERTOLIZUMAB PEGOL
     Dosage: 200 MG, EV 2 WEEKS(QOW)
     Route: 058
     Dates: start: 201408
  18. DEXILANT [Concomitant]
     Active Substance: DEXLANSOPRAZOLE
     Indication: GASTROOESOPHAGEAL REFLUX DISEASE
     Dosage: UNKNOWN DOSE, AS NEEDED (PRN)
     Route: 048
  19. FERAMAX [Concomitant]
     Active Substance: IRON\POLYSACCHARIDES
     Indication: RED BLOOD CELL ABNORMALITY
     Dosage: 150 MG, ONCE DAILY (QD)
     Route: 048
  20. HEPARIN [Concomitant]
     Active Substance: HEPARIN SODIUM
     Indication: THROMBOSIS
     Dosage: UNK
     Route: 058
     Dates: start: 20150804, end: 20150804
  21. MAGNESIUM [Concomitant]
     Active Substance: MAGNESIUM
     Indication: PREGNANCY
     Dosage: 1 DF, 2X/WEEK
     Route: 048
  22. NAPROXEN. [Concomitant]
     Active Substance: NAPROXEN
     Indication: PROCEDURAL PAIN
     Dosage: 1 (UNITS UNSPECIFIED) , 2X/DAY (BID)
     Dates: start: 20150804
  23. FENTANYL. [Concomitant]
     Active Substance: FENTANYL
     Indication: PROCEDURAL PAIN
     Dosage: UNK
     Dates: start: 20150802, end: 20150803

REACTIONS (15)
  - Hypertension [Recovered/Resolved]
  - Breast feeding [Unknown]
  - Placental insufficiency [Recovered/Resolved]
  - Incision site infection [Recovered/Resolved]
  - Premature delivery [Unknown]
  - Bronchitis [Recovered/Resolved]
  - Pregnancy [Unknown]
  - Hyperaesthesia [Not Recovered/Not Resolved]
  - Lung infection [Recovered/Resolved]
  - Anisocytosis [Recovered/Resolved]
  - Weight decreased [Not Recovered/Not Resolved]
  - Blood glucose decreased [Not Recovered/Not Resolved]
  - Vaginal haemorrhage [Recovering/Resolving]
  - Breast mass [Recovered/Resolved]
  - Blood glucose abnormal [Unknown]

NARRATIVE: CASE EVENT DATE: 201411
